FAERS Safety Report 6134695-1 (Version None)
Quarter: 2009Q1

REPORT INFORMATION
  Report Type: 
  Country: None (occurrence: None)
  Receive Date: 20090325
  Receipt Date: 20090320
  Transmission Date: 20090719
  Serious: Yes (Hospitalization)
  Sender: FDA-Public Use
  Company Number: 188652USA

PATIENT
  Age: 47 Year
  Sex: Male

DRUGS (5)
  1. RIVIA [Suspect]
     Dosage: 50 MG
     Dates: start: 20081201
  2. LAMIVUDINE + ZIDOVUDINE [Concomitant]
  3. INDINIVIR SULFATE [Concomitant]
  4. RITONAVIR [Concomitant]
  5. METHADONE HCL [Concomitant]

REACTIONS (5)
  - ABDOMINAL PAIN [None]
  - DIARRHOEA [None]
  - HEPATITIS A ANTIBODY POSITIVE [None]
  - HYPERHIDROSIS [None]
  - MUSCLE CONTRACTURE [None]
